FAERS Safety Report 24595116 (Version 1)
Quarter: 2024Q4

REPORT INFORMATION
  Report Type: Spontaneous
  Country: US (occurrence: US)
  Receive Date: 20241108
  Receipt Date: 20241108
  Transmission Date: 20250115
  Serious: Yes (Hospitalization)
  Sender: FRESENIUS KABI
  Company Number: US-FreseniusKabi-FK202416380

PATIENT
  Age: 25 Year
  Sex: Female
  Weight: 98.4 kg

DRUGS (12)
  1. VINBLASTINE [Suspect]
     Active Substance: VINBLASTINE
     Indication: Hodgkin^s disease
     Dosage: 13 MILLIGRAMS (C2 D1)
     Route: 042
     Dates: start: 20240909, end: 20241007
  2. ADCETRIS [Suspect]
     Active Substance: BRENTUXIMAB VEDOTIN
     Indication: Hodgkin^s disease
     Dosage: FORM OF ADMINISTRATION: POWDER FOR SOLUTION FOR INJECTION?115 MILLIGRAM (C2 D1)
     Route: 042
     Dates: start: 20240909, end: 20241007
  3. ADRIAMYCIN [Suspect]
     Active Substance: DOXORUBICIN HYDROCHLORIDE
     Indication: Hodgkin^s disease
     Dosage: FORM OF ADMINISTRATION: POWDER FOR SOLUTION FOR INJECTION ?54 MILLIGRAM (C2 D1)?UNSPECIFIED FREQUENC
     Route: 042
     Dates: start: 20240909, end: 20241007
  4. DACARBAZINE [Suspect]
     Active Substance: DACARBAZINE
     Indication: Hodgkin^s disease
     Dosage: FORM OF ADMINISTRATION: POWDER FOR INJECTION?810 MILLIGRAMS (C2 D1)?UNSPECIFIED FREQUENCY
     Route: 042
     Dates: start: 20240909, end: 20241007
  5. PEPCID [Concomitant]
     Active Substance: FAMOTIDINE
     Indication: Product used for unknown indication
     Dosage: THERAPY IS ONGOING
     Route: 048
     Dates: start: 20240909
  6. COLACE [Concomitant]
     Active Substance: DOCUSATE SODIUM
     Indication: Diarrhoea
     Dosage: ONGOING
     Route: 048
     Dates: start: 20240909
  7. ZOFRAN [Concomitant]
     Active Substance: ONDANSETRON HYDROCHLORIDE
     Indication: Nausea
     Dosage: ONGOING
     Route: 048
     Dates: start: 20240910
  8. CLARITIN [Concomitant]
     Active Substance: LORATADINE
     Indication: Prophylaxis
     Dosage: ONGOING
     Route: 048
     Dates: start: 20240910
  9. NIVESTYM [Concomitant]
     Active Substance: FILGRASTIM-AAFI
     Indication: Product used for unknown indication
     Dosage: ONGOING
     Route: 058
     Dates: start: 20240910
  10. TYLENOL [Concomitant]
     Active Substance: ACETAMINOPHEN
     Indication: Bone pain
     Dosage: ONGOING
     Route: 048
     Dates: start: 20240929
  11. IBUPROFEN [Concomitant]
     Active Substance: IBUPROFEN
     Indication: Bone pain
     Dosage: ONGOING
     Route: 048
     Dates: start: 20240929
  12. MIRALAX [Concomitant]
     Active Substance: POLYETHYLENE GLYCOL 3350
     Indication: Constipation
     Dosage: ONGOING
     Route: 048
     Dates: start: 20241007

REACTIONS (1)
  - Abdominal pain [Recovering/Resolving]

NARRATIVE: CASE EVENT DATE: 20241016
